FAERS Safety Report 15301985 (Version 4)
Quarter: 2019Q4

REPORT INFORMATION
  Report Type: Spontaneous
  Country: MM (occurrence: MM)
  Receive Date: 20180821
  Receipt Date: 20191220
  Transmission Date: 20200122
  Serious: Yes (Disabling)
  Sender: FDA-Public Use
  Company Number: MM-JNJFOC-20180815631

PATIENT
  Age: 25 Year
  Sex: Male
  Weight: 43 kg

DRUGS (57)
  1. CLOFAZIMINE [Suspect]
     Active Substance: CLOFAZIMINE
     Indication: TUBERCULOSIS
     Route: 048
     Dates: start: 20180224, end: 20180310
  2. RANITIDINE. [Concomitant]
     Active Substance: RANITIDINE
     Route: 048
     Dates: start: 20181017
  3. PYRAZINAMIDE. [Suspect]
     Active Substance: PYRAZINAMIDE
     Route: 048
     Dates: start: 20160914, end: 20180126
  4. DEXTROSE 5% [Concomitant]
     Active Substance: DEXTROSE
     Route: 065
     Dates: start: 20180420, end: 20180420
  5. CETIRIZINE [Concomitant]
     Active Substance: CETIRIZINE HYDROCHLORIDE
     Route: 065
     Dates: start: 20180731, end: 20180804
  6. CETIRIZINE [Concomitant]
     Active Substance: CETIRIZINE HYDROCHLORIDE
     Route: 065
     Dates: start: 20180813, end: 20180820
  7. CHLORPHENIRAMINE MALEATE. [Concomitant]
     Active Substance: CHLORPHENIRAMINE MALEATE
     Route: 065
     Dates: start: 20180820, end: 20180826
  8. DELAMANID [Suspect]
     Active Substance: DELAMANID
     Route: 048
     Dates: start: 20180503
  9. LINEZOLID. [Suspect]
     Active Substance: LINEZOLID
     Indication: TUBERCULOSIS
     Route: 048
     Dates: start: 20180224, end: 2018
  10. LINEZOLID. [Suspect]
     Active Substance: LINEZOLID
     Route: 048
     Dates: start: 20180905, end: 20190620
  11. PYRAZINAMIDE. [Suspect]
     Active Substance: PYRAZINAMIDE
     Indication: TUBERCULOSIS
     Route: 048
     Dates: start: 20100408, end: 20101008
  12. STUGERON [Concomitant]
     Active Substance: CINNARIZINE
     Indication: DIZZINESS
     Route: 048
     Dates: start: 20181026, end: 20181028
  13. STUGERON [Concomitant]
     Active Substance: CINNARIZINE
     Route: 048
     Dates: start: 20180810, end: 20180816
  14. ATORVAS [Concomitant]
     Active Substance: ATORVASTATIN CALCIUM
     Route: 048
     Dates: start: 20180312, end: 20180502
  15. HARTMANN^S SOLUTION [Concomitant]
     Active Substance: CALCIUM CHLORIDE\POTASSIUM CHLORIDE\SODIUM CHLORIDE\SODIUM LACTATE
     Dosage: 1 UNITS NOT REPORTED
     Route: 065
     Dates: start: 20180307, end: 20180311
  16. DICLOFENAC [Concomitant]
     Active Substance: DICLOFENAC
     Route: 065
     Dates: start: 20180420, end: 20180423
  17. HYDROCORTISONE. [Concomitant]
     Active Substance: HYDROCORTISONE
     Route: 065
     Dates: start: 20180422, end: 20180425
  18. POTASSIUM CHLORIDE. [Concomitant]
     Active Substance: POTASSIUM CHLORIDE
     Route: 065
     Dates: start: 20180430, end: 20180503
  19. POTASSIUM CHLORIDE. [Concomitant]
     Active Substance: POTASSIUM CHLORIDE
     Route: 065
     Dates: start: 20180503, end: 20180618
  20. STUGERON [Concomitant]
     Active Substance: CINNARIZINE
     Route: 048
     Dates: start: 20180702, end: 20180708
  21. ALLOPURINOL. [Concomitant]
     Active Substance: ALLOPURINOL
     Route: 048
     Dates: start: 20180928
  22. DIAZEPAM. [Concomitant]
     Active Substance: DIAZEPAM
     Route: 065
     Dates: start: 20180228, end: 20180304
  23. LORAZEPAM. [Concomitant]
     Active Substance: LORAZEPAM
     Route: 065
     Dates: start: 20180629, end: 20180805
  24. AMOXICILLIN/CLAVULANIC ACID [Suspect]
     Active Substance: AMOXICILLIN\CLAVULANIC ACID
     Indication: TUBERCULOSIS
     Route: 048
     Dates: start: 20180224, end: 20181224
  25. SODIUM CHLORIDE. [Concomitant]
     Active Substance: SODIUM CHLORIDE
     Route: 065
     Dates: start: 20180421, end: 20180421
  26. ASPILETS [Concomitant]
     Active Substance: ASPIRIN
     Dosage: 75 TABLETS
     Route: 048
     Dates: start: 20180312, end: 20180502
  27. RANITIDINE. [Concomitant]
     Active Substance: RANITIDINE
     Route: 048
     Dates: start: 20180723, end: 20180725
  28. DIAZEPAM. [Concomitant]
     Active Substance: DIAZEPAM
     Route: 065
     Dates: start: 20180723, end: 20180727
  29. HARTMANN^S SOLUTION [Concomitant]
     Active Substance: CALCIUM CHLORIDE\POTASSIUM CHLORIDE\SODIUM CHLORIDE\SODIUM LACTATE
     Dosage: 1 UNITS NOT REPORTED
     Route: 065
     Dates: start: 20180420, end: 20180420
  30. ALPRAZOLAM. [Concomitant]
     Active Substance: ALPRAZOLAM
     Route: 065
     Dates: start: 20180323, end: 20180328
  31. PARACETAMOL [Concomitant]
     Active Substance: ACETAMINOPHEN
     Route: 065
     Dates: start: 20180721, end: 20180723
  32. PARACETAMOL [Concomitant]
     Active Substance: ACETAMINOPHEN
     Route: 065
     Dates: start: 20180731, end: 20180804
  33. CEFIXIME. [Concomitant]
     Active Substance: CEFIXIME
     Route: 065
     Dates: start: 20180725, end: 20180729
  34. PYRAZINAMIDE. [Suspect]
     Active Substance: PYRAZINAMIDE
     Route: 048
     Dates: start: 20180224, end: 20181213
  35. BETEX [Concomitant]
     Route: 048
     Dates: start: 20180801
  36. DICLOFENAC [Concomitant]
     Active Substance: DICLOFENAC
     Route: 065
     Dates: start: 20180723, end: 20180725
  37. CETIRIZINE [Concomitant]
     Active Substance: CETIRIZINE HYDROCHLORIDE
     Route: 065
     Dates: start: 20180820, end: 20180826
  38. FLUCONAZOLE. [Concomitant]
     Active Substance: FLUCONAZOLE
     Route: 065
     Dates: start: 20180810, end: 20180821
  39. BEDAQUILINE [Suspect]
     Active Substance: BEDAQUILINE
     Route: 048
     Dates: start: 20180310, end: 20180426
  40. BEDAQUILINE [Suspect]
     Active Substance: BEDAQUILINE
     Route: 048
     Dates: start: 20180503
  41. DELAMANID [Suspect]
     Active Substance: DELAMANID
     Indication: TUBERCULOSIS
     Route: 048
     Dates: start: 20180224, end: 20180426
  42. PYRAZINAMIDE. [Suspect]
     Active Substance: PYRAZINAMIDE
     Route: 048
     Dates: start: 20160319, end: 20161119
  43. DIAZEPAM. [Concomitant]
     Active Substance: DIAZEPAM
     Route: 065
     Dates: start: 20180720, end: 20180720
  44. GELMAG [Concomitant]
     Route: 065
     Dates: start: 20180629, end: 20180805
  45. PROCHLORPERAZINE MALEATE. [Concomitant]
     Active Substance: PROCHLORPERAZINE MALEATE
     Route: 065
     Dates: start: 20180730, end: 20180806
  46. FLUCONAZOLE. [Concomitant]
     Active Substance: FLUCONAZOLE
     Route: 065
     Dates: start: 20180813, end: 20180826
  47. BEDAQUILINE [Suspect]
     Active Substance: BEDAQUILINE
     Indication: TUBERCULOSIS
     Route: 048
     Dates: start: 20180224, end: 20180309
  48. CLOFAZIMINE [Suspect]
     Active Substance: CLOFAZIMINE
     Route: 048
     Dates: start: 20180424, end: 20180426
  49. CLOFAZIMINE [Suspect]
     Active Substance: CLOFAZIMINE
     Route: 048
     Dates: start: 20180503
  50. IMIPENEM AND CILASTATIN [Suspect]
     Active Substance: CILASTATIN SODIUM\IMIPENEM
     Indication: TUBERCULOSIS
     Route: 042
     Dates: start: 20180224, end: 20181224
  51. SODIUM CHLORIDE. [Concomitant]
     Active Substance: SODIUM CHLORIDE
     Dosage: 0.9 %
     Route: 065
     Dates: start: 20180420, end: 20180420
  52. STUGERON [Concomitant]
     Active Substance: CINNARIZINE
     Route: 048
     Dates: start: 20180725, end: 20180727
  53. STUGERON [Concomitant]
     Active Substance: CINNARIZINE
     Route: 048
     Dates: start: 20180730, end: 20180806
  54. GINSENG FEROVIT-E [Concomitant]
     Indication: ANAEMIA
     Route: 048
     Dates: start: 20180829
  55. AMOXICILLIN. [Concomitant]
     Active Substance: AMOXICILLIN
     Route: 065
     Dates: start: 20180518, end: 20180522
  56. CETIRIZINE [Concomitant]
     Active Substance: CETIRIZINE HYDROCHLORIDE
     Route: 065
     Dates: start: 20180702, end: 20180704
  57. GABAPENTIN. [Concomitant]
     Active Substance: GABAPENTIN
     Route: 065
     Dates: start: 20180927, end: 20181003

REACTIONS (4)
  - Anaemia [Unknown]
  - Tinnitus [Recovering/Resolving]
  - Vestibular disorder [Recovering/Resolving]
  - Hypoacusis [Not Recovered/Not Resolved]

NARRATIVE: CASE EVENT DATE: 20180702
